FAERS Safety Report 8672763 (Version 2)
Quarter: 2013Q4

REPORT INFORMATION
  Report Type: Spontaneous
  Country: JP (occurrence: JP)
  Receive Date: 20120719
  Receipt Date: 20131107
  Transmission Date: 20140711
  Serious: Yes (Other)
  Sender: FDA-Public Use
  Company Number: JP-009507513-1207JPN005521

PATIENT
  Age: 45 Year
  Sex: Female

DRUGS (1)
  1. PEGINTRON [Suspect]
     Route: 058

REACTIONS (1)
  - Myasthenia gravis [Unknown]
